FAERS Safety Report 6748887-1 (Version None)
Quarter: 2010Q2

REPORT INFORMATION
  Report Type: 
  Country: None (occurrence: None)
  Receive Date: 20100601
  Receipt Date: 20100518
  Transmission Date: 20101027
  Serious: Yes (Hospitalization)
  Sender: FDA-Public Use
  Company Number: FR-RANBAXY-2010RR-32167

PATIENT
  Age: 73 Year
  Sex: Female
  Weight: 58 kg

DRUGS (14)
  1. AMIODARONE HYDROCHLORIDE [Suspect]
     Dosage: 200 MG, UNK
  2. BROMAZEPAM [Suspect]
     Dosage: UNK
  3. ZOLPIDEM [Suspect]
     Dosage: 10 MG, UNK
  4. ESOMEPRAZOLE MAGNESIUM [Suspect]
     Dosage: 20 MG, UNK
  5. FLUINDIONE [Concomitant]
  6. DIPYRAMIDOLE [Concomitant]
  7. RAMIPRIL [Concomitant]
  8. AMLODIPINE [Concomitant]
  9. ATORVASTATIN [Concomitant]
  10. GLICLAZIDE [Concomitant]
  11. ETOMIDATE [Concomitant]
     Dosage: 0.3 MG/KG, UNK
  12. SUXAMETHONIUM [Concomitant]
     Dosage: 1.3 MG/KG, UNK
  13. BETAHISTINE [Concomitant]
  14. FENTANYL [Concomitant]
     Dosage: 3.5 UG/KG, UNK

REACTIONS (3)
  - COMA [None]
  - DRUG INTERACTION [None]
  - OVERDOSE [None]
